FAERS Safety Report 4853483-7 (Version None)
Quarter: 2005Q4

REPORT INFORMATION
  Report Type: 
  Country: None (occurrence: None)
  Receive Date: 20051214
  Receipt Date: 20051117
  Transmission Date: 20060501
  Serious: Yes (Other)
  Sender: FDA-Public Use
  Company Number: PHNU2005DE03807

PATIENT
  Age: 70 Year
  Sex: Male
  Weight: 78 kg

DRUGS (6)
  1. CLOZARIL [Suspect]
     Indication: PARKINSON'S DISEASE
     Dosage: 12.5 MG, QD
     Route: 048
  2. TASMAR [Concomitant]
     Indication: PARKINSON'S DISEASE
     Dosage: 300 MG, QD
     Route: 048
     Dates: start: 20051121
  3. ISICOM ^DESITIN^ [Concomitant]
     Indication: PARKINSON'S DISEASE
     Dosage: 900 MG, QD
     Route: 048
  4. PENTAERYTHRITOL TETRANITRATE [Concomitant]
     Dosage: 80 MG, QD
     Route: 048
  5. NACOM - SLOW RELEASE [Concomitant]
     Indication: PARKINSON'S DISEASE
     Dosage: 200 MG, QD
     Route: 048
  6. CABASERIL [Concomitant]
     Indication: PARKINSON'S DISEASE
     Dosage: 4 MG, QD
     Route: 048

REACTIONS (2)
  - LYMPHOPENIA [None]
  - WHITE BLOOD CELL COUNT INCREASED [None]
